FAERS Safety Report 8060580-4 (Version None)
Quarter: 2012Q1

REPORT INFORMATION
  Report Type: 
  Country: None (occurrence: None)
  Receive Date: 20120120
  Receipt Date: 20120118
  Transmission Date: 20120608
  Serious: Yes (Death, Other)
  Sender: FDA-Public Use
  Company Number: PHHY2012BR004791

PATIENT
  Age: 49 Year
  Sex: Female

DRUGS (5)
  1. CLONIDINE [Concomitant]
  2. RISPERIDONE [Suspect]
     Indication: SCHIZOPHRENIA
  3. AMANTADINE HCL [Concomitant]
  4. MIDAZOLAM [Concomitant]
  5. CARBAMAZEPINE [Suspect]
     Indication: SCHIZOPHRENIA

REACTIONS (4)
  - AUTONOMIC NERVOUS SYSTEM IMBALANCE [None]
  - NEUROLEPTIC MALIGNANT SYNDROME [None]
  - DEATH [None]
  - HYPERTHERMIA [None]
